FAERS Safety Report 20557857 (Version 1)
Quarter: 2022Q1

REPORT INFORMATION
  Report Type: Report from Study
  Country: US (occurrence: US)
  Receive Date: 20220307
  Receipt Date: 20220307
  Transmission Date: 20220423
  Serious: Yes (Hospitalization, Other)
  Sender: FDA-Public Use
  Company Number: US-NOVARTISPH-NVSC2022US051210

PATIENT
  Sex: Male

DRUGS (1)
  1. ENTRESTO [Suspect]
     Active Substance: SACUBITRIL\VALSARTAN
     Indication: Product used for unknown indication
     Dosage: UNK UNK, BID, (24/26 MG)
     Route: 048
     Dates: start: 20211222

REACTIONS (4)
  - Catheterisation cardiac [Unknown]
  - Cardiac failure congestive [Unknown]
  - Blood sodium normal [Unknown]
  - Fatigue [Unknown]
